FAERS Safety Report 16033030 (Version 1)
Quarter: 2019Q1

REPORT INFORMATION
  Report Type: Spontaneous
  Country: US (occurrence: US)
  Receive Date: 20190305
  Receipt Date: 20190305
  Transmission Date: 20190418
  Serious: No
  Sender: FDA-Public Use
  Company Number: US-IMPAX LABORATORIES, LLC-2018-IPXL-02220

PATIENT
  Age: 61 Year
  Sex: Male

DRUGS (2)
  1. RYTARY [Suspect]
     Active Substance: CARBIDOPA\LEVODOPA
     Dosage: 61.25/245 MG, TWO CAPSULES, FOUR TIMES A DAY (QID)
     Route: 065
     Dates: start: 2018
  2. RYTARY [Suspect]
     Active Substance: CARBIDOPA\LEVODOPA
     Indication: PRODUCT USED FOR UNKNOWN INDICATION
     Dosage: 61.25/245 MG, TWO CAPSULES, FOUR TIMES A DAY (QID)
     Route: 065

REACTIONS (4)
  - Somnolence [Unknown]
  - Sleep disorder [Unknown]
  - Drug effect decreased [Unknown]
  - Fall [Unknown]

NARRATIVE: CASE EVENT DATE: 2018
